FAERS Safety Report 18538262 (Version 1)
Quarter: 2020Q4

REPORT INFORMATION
  Report Type: Spontaneous
  Country: US (occurrence: US)
  Receive Date: 20201123
  Receipt Date: 20201123
  Transmission Date: 20210114
  Serious: No
  Sender: FDA-Public Use
  Company Number: US-009507513-2011USA010666

PATIENT
  Sex: Female

DRUGS (2)
  1. NEXPLANON [Suspect]
     Active Substance: ETONOGESTREL
     Indication: CONTRACEPTION
     Dosage: 1 IMPLANT (68 MILLIGRAMS) EVERY 3 YEARS
     Route: 059
     Dates: start: 201810
  2. NEXPLANON [Suspect]
     Active Substance: ETONOGESTREL
     Dosage: NEW IMPLANT
     Route: 059

REACTIONS (1)
  - Medical device site discomfort [Not Recovered/Not Resolved]
